FAERS Safety Report 6580763-X (Version None)
Quarter: 2010Q1

REPORT INFORMATION
  Report Type: 
  Country: None (occurrence: None)
  Receive Date: 20100212
  Receipt Date: 20091214
  Transmission Date: 20100710
  Serious: No
  Sender: FDA-Public Use
  Company Number: US-ALLERGAN-0917147US

PATIENT
  Sex: Female

DRUGS (3)
  1. SANCTURA XR [Suspect]
     Indication: MICTURITION URGENCY
     Dosage: 60 MG, QD
     Route: 048
     Dates: start: 20091101, end: 20091214
  2. METFORMIN [Concomitant]
  3. SIMVASTATIN [Concomitant]

REACTIONS (1)
  - VISION BLURRED [None]
